FAERS Safety Report 4738096-X (Version None)
Quarter: 2005Q3

REPORT INFORMATION
  Report Type: 
  Country: None (occurrence: None)
  Receive Date: 20050809
  Receipt Date: 20050707
  Transmission Date: 20060218
  Serious: Yes (Other)
  Sender: FDA-Public Use
  Company Number: GB-BRISTOL-MYERS SQUIBB COMPANY-13033113

PATIENT
  Age: 36 Year
  Sex: Male
  Weight: 107 kg

DRUGS (2)
  1. ABILIFY [Suspect]
     Indication: SCHIZOPHRENIA
     Route: 048
     Dates: start: 20050705
  2. MOLINDONE [Concomitant]
     Indication: SCHIZOPHRENIA
     Route: 048
     Dates: start: 20041201, end: 20050711

REACTIONS (3)
  - HEADACHE [None]
  - INSOMNIA [None]
  - SYNCOPE [None]
